FAERS Safety Report 7126421-4 (Version None)
Quarter: 2010Q4

REPORT INFORMATION
  Report Type: 
  Country: None (occurrence: None)
  Receive Date: 20101129
  Receipt Date: 20101122
  Transmission Date: 20110411
  Serious: Yes (Hospitalization)
  Sender: FDA-Public Use
  Company Number: NL-ROCHE-743520

PATIENT
  Sex: Male

DRUGS (5)
  1. BEVACIZUMAB [Suspect]
     Indication: COLORECTAL CANCER
     Dosage: LAST CYCLE: 2, LAST DOSE PRIOR TO SAE:18 OCT 2010
     Route: 042
     Dates: start: 20100927
  2. CAPECITABINE [Suspect]
     Indication: COLORECTAL CANCER
     Dosage: CYCLE 2, LAST DOSE PRIOR TO SAE 18 OCT 2010, 2DD 2500 MG
     Route: 048
     Dates: start: 20100927
  3. OXALIPLATIN [Suspect]
     Indication: COLORECTAL CANCER
     Dosage: CYCLE 2, LAST DOSE PRIOR TO SAE: 18 OCTOBER 2010
     Route: 042
     Dates: start: 20100927
  4. PANTOPRAZOLE SODIUM [Concomitant]
  5. LOPERAMIDE [Concomitant]

REACTIONS (2)
  - DIARRHOEA [None]
  - PYREXIA [None]
